FAERS Safety Report 6830093-3 (Version None)
Quarter: 2010Q3

REPORT INFORMATION
  Report Type: 
  Country: None (occurrence: None)
  Receive Date: 20100711
  Receipt Date: 20100517
  Transmission Date: 20110219
  Serious: No
  Sender: FDA-Public Use
  Company Number: US-ALLERGAN-1006469US

PATIENT
  Age: 60 Year
  Sex: Female

DRUGS (6)
  1. LATISSE [Suspect]
     Indication: GROWTH OF EYELASHES
     Dosage: 1 GTT, QHS
     Route: 061
     Dates: start: 20091201, end: 20100510
  2. SYNTHROID [Concomitant]
     Indication: HYPOTHYROIDISM
  3. ASPIRIN [Concomitant]
  4. TYLENOL W/ CODEINE NO. 3 [Concomitant]
  5. COUMADIN [Concomitant]
  6. WARFEN (THIS IS HOW IT WAS TYPED) [Concomitant]

REACTIONS (3)
  - EAR INFECTION [None]
  - EAR PAIN [None]
  - URINARY TRACT INFECTION [None]
